FAERS Safety Report 7591407-2 (Version None)
Quarter: 2011Q3

REPORT INFORMATION
  Report Type: 
  Country: None (occurrence: None)
  Receive Date: 20110706
  Receipt Date: 20110627
  Transmission Date: 20111222
  Serious: Yes (Other)
  Sender: FDA-Public Use
  Company Number: US-AMGEN-QUU423435

PATIENT
  Age: 63 Year
  Sex: Female

DRUGS (1)
  1. ENBREL [Suspect]
     Indication: RHEUMATOID ARTHRITIS
     Dosage: 50 MG, QWK
     Route: 058
     Dates: start: 20091230

REACTIONS (11)
  - RECTAL HAEMORRHAGE [None]
  - GAIT DISTURBANCE [None]
  - MUSCLE STRAIN [None]
  - ACTIVITIES OF DAILY LIVING IMPAIRED [None]
  - PAIN IN EXTREMITY [None]
  - NECK PAIN [None]
  - TONGUE NEOPLASM BENIGN [None]
  - PARANASAL SINUS HYPERSECRETION [None]
  - COUGH [None]
  - RHEUMATOID ARTHRITIS [None]
  - WALKING AID USER [None]
